FAERS Safety Report 22210297 (Version 1)
Quarter: 2023Q2

REPORT INFORMATION
  Report Type: Spontaneous
  Country: US (occurrence: US)
  Receive Date: 20230414
  Receipt Date: 20230414
  Transmission Date: 20230722
  Serious: Yes (Hospitalization, Other)
  Sender: FDA-Public Use
  Company Number: US-CTI BIOPHARMA-2023US03526

PATIENT

DRUGS (4)
  1. VONJO [Suspect]
     Active Substance: PACRITINIB
     Indication: Prostatomegaly
     Dosage: 200 MG, BID
     Route: 048
     Dates: start: 20230317
  2. LASIX [Concomitant]
     Active Substance: FUROSEMIDE
  3. COREG [Concomitant]
     Active Substance: CARVEDILOL
  4. ENTRESTO [Concomitant]
     Active Substance: SACUBITRIL\VALSARTAN

REACTIONS (4)
  - Oedema [Unknown]
  - Cardiac pacemaker insertion [Unknown]
  - Product dose omission issue [Unknown]
  - Off label use [Unknown]
